FAERS Safety Report 8962335 (Version 1)
Quarter: 2012Q4

REPORT INFORMATION
  Report Type: Spontaneous
  Country: US (occurrence: None)
  Receive Date: 20121211
  Receipt Date: 20121211
  Transmission Date: 20130627
  Serious: No
  Sender: FDA-Public Use
  Company Number: None

PATIENT
  Age: 71 Year
  Sex: Male
  Weight: 73.48 kg

DRUGS (1)
  1. JANUVIA [Suspect]
     Indication: DIABETES
     Dosage: one Tablet Once per day Mouth
     Route: 048
     Dates: start: 20120913, end: 20121114

REACTIONS (5)
  - Abdominal pain [None]
  - Rash [None]
  - Pruritus [None]
  - Rhinorrhoea [None]
  - Nasal congestion [None]
